FAERS Safety Report 17648143 (Version 1)
Quarter: 2020Q2

REPORT INFORMATION
  Report Type: Spontaneous
  Country: FR (occurrence: FR)
  Receive Date: 20200409
  Receipt Date: 20200409
  Transmission Date: 20200713
  Serious: Yes (Other)
  Sender: FDA-Public Use
  Company Number: FR-CELLTRION INC.-2020FR021327

PATIENT

DRUGS (2)
  1. MYCOPHENOLATE MOFETIL. [Suspect]
     Active Substance: MYCOPHENOLATE MOFETIL
     Indication: SMALL CELL LUNG CANCER
     Route: 005
  2. RITUXIMAB (UNKNOWN) [Suspect]
     Active Substance: RITUXIMAB
     Indication: SMALL CELL LUNG CANCER
     Route: 065

REACTIONS (6)
  - Nervous system disorder [Unknown]
  - Myasthenic syndrome [Unknown]
  - Intracranial mass [Unknown]
  - Limbic encephalitis [Unknown]
  - Epilepsy [Unknown]
  - Product use in unapproved indication [Unknown]
